FAERS Safety Report 21723063 (Version 2)
Quarter: 2023Q1

REPORT INFORMATION
  Report Type: Spontaneous
  Country: US (occurrence: US)
  Receive Date: 20221213
  Receipt Date: 20230309
  Transmission Date: 20230417
  Serious: Yes (Death, Other)
  Sender: FDA-Public Use
  Company Number: US-PFIZER INC-PV202200122169

PATIENT
  Age: 92 Year
  Sex: Male
  Weight: 86.621 kg

DRUGS (1)
  1. RETACRIT [Suspect]
     Active Substance: EPOETIN ALFA-EPBX
     Indication: Renal disorder
     Dosage: 10000 ML

REACTIONS (2)
  - Death [Fatal]
  - Off label use [Unknown]
